FAERS Safety Report 6247776-9 (Version None)
Quarter: 2009Q2

REPORT INFORMATION
  Report Type: 
  Country: None (occurrence: None)
  Receive Date: 20090626
  Receipt Date: 20090616
  Transmission Date: 20091009
  Serious: Yes (Other)
  Sender: FDA-Public Use
  Company Number: AT-BAXTER-2009BH010226

PATIENT
  Age: 67 Year
  Sex: Female

DRUGS (12)
  1. IFOSFAMIDE [Suspect]
     Indication: HODGKIN'S DISEASE
     Route: 065
  2. CYCLOPHOSPHAMIDE [Suspect]
     Indication: HODGKIN'S DISEASE
     Route: 065
  3. BLEOMYCIN GENERIC [Suspect]
     Indication: HODGKIN'S DISEASE
     Route: 065
  4. ETOPOSIDE [Suspect]
     Indication: HODGKIN'S DISEASE
     Route: 065
  5. MESNA [Suspect]
     Indication: HODGKIN'S DISEASE
     Route: 065
  6. VINCRISTINE SULFATE [Suspect]
     Indication: HODGKIN'S DISEASE
     Route: 065
  7. VINBLASTINE SULFATE [Suspect]
     Indication: HODGKIN'S DISEASE
     Route: 065
  8. PREDNISONE TAB [Suspect]
     Indication: HODGKIN'S DISEASE
     Route: 065
  9. METHOTREXATE GENERIC [Suspect]
     Indication: HODGKIN'S DISEASE
     Route: 065
  10. DACARBAZINE [Suspect]
     Indication: HODGKIN'S DISEASE
     Route: 065
  11. DOXORUBICIN HYDROCHLORIDE [Suspect]
     Indication: HODGKIN'S DISEASE
     Route: 065
  12. PROCARBAZINE [Suspect]
     Indication: HODGKIN'S DISEASE
     Route: 065

REACTIONS (1)
  - DIFFUSE LARGE B-CELL LYMPHOMA [None]
